FAERS Safety Report 10359710 (Version 1)
Quarter: 2014Q3

REPORT INFORMATION
  Report Type: Spontaneous
  Country: US (occurrence: None)
  Receive Date: 20140731
  Receipt Date: 20140731
  Transmission Date: 20150326
  Serious: Yes (Hospitalization)
  Sender: FDA-Public Use
  Company Number: None

PATIENT
  Age: 75 Year
  Sex: Male
  Weight: 88.8 kg

DRUGS (1)
  1. ASPIRIN. [Suspect]
     Active Substance: ASPIRIN
     Indication: CARDIOVASCULAR EVENT PROPHYLAXIS
     Route: 048
     Dates: start: 20120419

REACTIONS (6)
  - Haemoglobin decreased [None]
  - Gastric haemorrhage [None]
  - Gastrointestinal haemorrhage [None]
  - Condition aggravated [None]
  - Haematocrit decreased [None]
  - Cardiac failure congestive [None]

NARRATIVE: CASE EVENT DATE: 20140704
